FAERS Safety Report 5049013-X (Version None)
Quarter: 2006Q3

REPORT INFORMATION
  Report Type: 
  Country: None (occurrence: None)
  Receive Date: 20060712
  Receipt Date: 20051216
  Transmission Date: 20061208
  Serious: No
  Sender: FDA-Public Use
  Company Number: US-GLAXOSMITHKLINE-A0586104A

PATIENT
  Age: 36 Year
  Sex: Female

DRUGS (3)
  1. IMITREX [Suspect]
     Indication: MIGRAINE
     Dosage: 100MG AS REQUIRED
     Route: 048
     Dates: start: 20051214, end: 20051214
  2. VICODIN [Concomitant]
  3. IBUPROFEN [Concomitant]

REACTIONS (3)
  - EYE SWELLING [None]
  - PRURITUS [None]
  - RASH [None]
